FAERS Safety Report 9406846 (Version 2)
Quarter: 2014Q1

REPORT INFORMATION
  Report Type: Spontaneous
  Country: JP (occurrence: JP)
  Receive Date: 20130718
  Receipt Date: 20140221
  Transmission Date: 20141002
  Serious: Yes (Other)
  Sender: FDA-Public Use
  Company Number: PHHY2013JP071394

PATIENT
  Sex: Female
  Weight: 16 kg

DRUGS (4)
  1. TEGRETOL [Suspect]
     Indication: EPILEPSY
     Dosage: 80 MG, DAILY
     Route: 048
     Dates: start: 20050623, end: 20080606
  2. TEGRETOL [Suspect]
     Route: 048
     Dates: start: 20080607, end: 20080811
  3. DEPAKENE [Concomitant]
     Indication: EPILEPSY
     Dosage: 2 DF, BID
     Route: 048
  4. SELENICA R [Concomitant]

REACTIONS (2)
  - Epilepsy [Unknown]
  - Electroencephalogram abnormal [Unknown]
